FAERS Safety Report 5096617-4 (Version None)
Quarter: 2006Q3

REPORT INFORMATION
  Report Type: 
  Country: None (occurrence: None)
  Receive Date: 20060831
  Receipt Date: 20060814
  Transmission Date: 20061208
  Serious: Yes (Hospitalization, Other)
  Sender: FDA-Public Use
  Company Number: DSA_28615_2006

PATIENT
  Age: 70 Year
  Sex: Male
  Weight: 77 kg

DRUGS (6)
  1. DICLOFENAC SODIUM [Suspect]
     Indication: BACK PAIN
     Dosage: 25 MG TID PO
     Route: 048
  2. DICLOFENAC SODIUM [Suspect]
     Indication: SPINAL OSTEOARTHRITIS
     Dosage: 25 MG TID PO
     Route: 048
  3. METFORMIN HCL [Suspect]
     Indication: DIABETES MELLITUS
     Dosage: 850 MG TID
  4. FUROSEMIDE [Suspect]
     Dosage: 40 MG Q DAY
  5. ISOSORBIDE MONONITRATE [Concomitant]
  6. QUINAPRIL [Concomitant]

REACTIONS (20)
  - ABDOMINAL DISCOMFORT [None]
  - ANION GAP INCREASED [None]
  - BLOOD CALCIUM DECREASED [None]
  - BLOOD GLUCOSE INCREASED [None]
  - BLOOD POTASSIUM INCREASED [None]
  - BLOOD SODIUM DECREASED [None]
  - C-REACTIVE PROTEIN INCREASED [None]
  - CENTRAL VENOUS PRESSURE INCREASED [None]
  - CONDITION AGGRAVATED [None]
  - DISORIENTATION [None]
  - DRUG TOXICITY [None]
  - HEART RATE INCREASED [None]
  - LEUKOCYTOSIS [None]
  - METABOLIC ACIDOSIS [None]
  - MYALGIA [None]
  - RED BLOOD CELL SEDIMENTATION RATE INCREASED [None]
  - RENAL FAILURE CHRONIC [None]
  - RESPIRATORY DISTRESS [None]
  - SOMNOLENCE [None]
  - URINE OUTPUT DECREASED [None]
